FAERS Safety Report 18046853 (Version 1)
Quarter: 2020Q3

REPORT INFORMATION
  Report Type: Report from Study
  Country: US (occurrence: US)
  Receive Date: 20200720
  Receipt Date: 20200720
  Transmission Date: 20201103
  Serious: Yes (Other)
  Sender: FDA-Public Use
  Company Number: US-GILEAD-2020-0483737

PATIENT
  Age: 62 Year
  Sex: Female

DRUGS (8)
  1. AMBRISENTAN [Suspect]
     Active Substance: AMBRISENTAN
     Indication: PULMONARY HYPERTENSION
     Route: 065
  2. SILDENAFIL. [Suspect]
     Active Substance: SILDENAFIL
     Indication: PRODUCT USED FOR UNKNOWN INDICATION
     Route: 065
  3. OFEV [Concomitant]
     Active Substance: NINTEDANIB
  4. TYVASO [Suspect]
     Active Substance: TREPROSTINIL
     Indication: PULMONARY HYPERTENSION
     Dosage: 48 ?G, QID
     Route: 055
     Dates: start: 20180217
  5. XARELTO [Concomitant]
     Active Substance: RIVAROXABAN
  6. BUMEX [Concomitant]
     Active Substance: BUMETANIDE
  7. METOPROLOL. [Concomitant]
     Active Substance: METOPROLOL
  8. CELLCEPT [Concomitant]
     Active Substance: MYCOPHENOLATE MOFETIL\MYCOPHENOLATE MOFETIL HYDROCHLORIDE

REACTIONS (3)
  - Headache [Not Recovered/Not Resolved]
  - Deafness [Not Recovered/Not Resolved]
  - Pain [Unknown]
